FAERS Safety Report 4306902-9 (Version None)
Quarter: 2004Q1

REPORT INFORMATION
  Report Type: 
  Country: None (occurrence: None)
  Receive Date: 20040227
  Receipt Date: 20040227
  Transmission Date: 20041129
  Serious: No
  Sender: FDA-Public Use
  Company Number: None

PATIENT
  Age: 13 Year
  Sex: Male
  Weight: 58.0604 kg

DRUGS (2)
  1. CARBAMAZEPINE [Suspect]
     Indication: BIPOLAR DISORDER
     Dosage: 400 MG PO BID
     Route: 048
     Dates: start: 20031126
  2. OLANZAPINE [Concomitant]

REACTIONS (4)
  - DIZZINESS [None]
  - IDIOPATHIC THROMBOCYTOPENIC PURPURA [None]
  - RASH MACULAR [None]
  - SINUS CONGESTION [None]
